FAERS Safety Report 15362040 (Version 2)
Quarter: 2018Q3

REPORT INFORMATION
  Report Type: Spontaneous
  Country: JP (occurrence: JP)
  Receive Date: 20180907
  Receipt Date: 20180926
  Transmission Date: 20181010
  Serious: Yes (Hospitalization, Other)
  Sender: FDA-Public Use
  Company Number: JP-GLAXOSMITHKLINE-JP2018JPN159509

PATIENT
  Sex: Female

DRUGS (3)
  1. ZOVIRAX [Suspect]
     Active Substance: ACYCLOVIR
     Dosage: 200 MG, TID
     Route: 048
  2. BAKTAR COMBINATION GRANULES [Concomitant]
     Dosage: UNK, BID,MONDAY,WEDNESDAY,FRIDAY
  3. REVATIO [Concomitant]
     Active Substance: SILDENAFIL CITRATE
     Dosage: 0.5 DF, TID

REACTIONS (4)
  - Product use issue [Unknown]
  - Medication residue present [Unknown]
  - Neoplasm malignant [Recovering/Resolving]
  - Incorrect drug administration duration [Unknown]
